FAERS Safety Report 20577460 (Version 1)
Quarter: 2022Q1

REPORT INFORMATION
  Report Type: Spontaneous
  Country: US (occurrence: US)
  Receive Date: 20220310
  Receipt Date: 20220310
  Transmission Date: 20220423
  Serious: No
  Sender: FDA-Public Use
  Company Number: US-TAKEDA-2022TUS014719

PATIENT
  Sex: Female
  Weight: 50 kg

DRUGS (1)
  1. VYVANSE [Suspect]
     Active Substance: LISDEXAMFETAMINE DIMESYLATE
     Indication: Binge eating
     Dosage: 70 MILLIGRAM
     Route: 065
     Dates: start: 202112

REACTIONS (3)
  - Product availability issue [Unknown]
  - Off label use [Unknown]
  - No adverse event [Unknown]
